FAERS Safety Report 11111961 (Version 1)
Quarter: 2015Q2

REPORT INFORMATION
  Report Type: Spontaneous
  Country: US (occurrence: None)
  Receive Date: 20150512
  Receipt Date: 20150512
  Transmission Date: 20150821
  Serious: Yes (Other)
  Sender: FDA-Public Use
  Company Number: US-2015VAL000289

PATIENT
  Age: 53 Year
  Sex: Female

DRUGS (3)
  1. LACOSAMIDE (LACOSAMIDE) [Suspect]
     Active Substance: LACOSAMIDE
     Indication: SEIZURE
  2. PRIMIDONE. [Concomitant]
     Active Substance: PRIMIDONE
  3. CARBAMAZEPINE (CARBAMAZEPINE) [Suspect]
     Active Substance: CARBAMAZEPINE
     Indication: SEIZURE

REACTIONS (2)
  - Seizure [None]
  - Condition aggravated [None]
